FAERS Safety Report 8261328-0 (Version None)
Quarter: 2012Q2

REPORT INFORMATION
  Report Type: 
  Country: None (occurrence: None)
  Receive Date: 20120402
  Receipt Date: 20120322
  Transmission Date: 20120825
  Serious: Yes (Disabling)
  Sender: FDA-Public Use
  Company Number: 2012PV000017

PATIENT
  Age: 46 Year
  Sex: Male

DRUGS (11)
  1. DEPOCYT [Suspect]
     Indication: PROPHYLAXIS
     Dosage: 50 MG;QM;INTH
     Route: 037
     Dates: start: 20110518
  2. RITUXIMAB [Concomitant]
  3. SULFAMETHOXAZOLE AND TRIMETHOPRIM [Concomitant]
  4. CYCLOPHOSPHAMIDE [Concomitant]
  5. DEXAMETHASONE [Concomitant]
  6. DOXORUBICIN HCL [Concomitant]
  7. DOLCONTIN /00036302/ [Concomitant]
  8. ZOVIRAX /00587301/ [Concomitant]
  9. ETOPOSIDE [Concomitant]
  10. LACTULOSE [Concomitant]
  11. OXYCODONE HCL [Concomitant]

REACTIONS (4)
  - FAECAL INCONTINENCE [None]
  - URINARY INCONTINENCE [None]
  - PERINEAL PAIN [None]
  - NEUROTOXICITY [None]
